FAERS Safety Report 9037033 (Version 1)
Quarter: 2012Q4

REPORT INFORMATION
  Report Type: Spontaneous
  Country: GR (occurrence: None)
  Receive Date: 20121218
  Receipt Date: 20121218
  Transmission Date: 20130627
  Serious: Yes (Other)
  Sender: FDA-Public Use
  Company Number: 2012034233

PATIENT
  Age: 12 Year
  Sex: Male

DRUGS (1)
  1. PRIVIGEN (IMMUNE GLOBULIN INTRAVENOUS (HUMAN) 10% LIQUID) [Suspect]
     Indication: THROMBOCYTOPENIA
     Dosage: administration of gamma globulin, treatment with gamma globulin (4 times)

REACTIONS (3)
  - Thrombocytopenia [None]
  - Drug ineffective [None]
  - Disease recurrence [None]
